FAERS Safety Report 13405558 (Version 2)
Quarter: 2017Q2

REPORT INFORMATION
  Report Type: Report from Study
  Country: RO (occurrence: RO)
  Receive Date: 20170405
  Receipt Date: 20170517
  Transmission Date: 20170830
  Serious: Yes (Death, Other)
  Sender: FDA-Public Use
  Company Number: RO-TOLMAR, INC.-2017RO003997

PATIENT
  Age: 67 Year
  Sex: Male
  Weight: 110 kg

DRUGS (3)
  1. ELIGARD [Suspect]
     Active Substance: LEUPROLIDE ACETATE
     Indication: PROSTATE CANCER
     Dosage: 45 MG, EVERY 6 MONTHS
     Route: 058
     Dates: start: 20150420, end: 20150420
  2. ZOMETA [Concomitant]
     Active Substance: ZOLEDRONIC ACID
  3. DIPHERELINE [Concomitant]

REACTIONS (1)
  - Bladder cancer [Fatal]
